FAERS Safety Report 26073389 (Version 1)
Quarter: 2025Q4

REPORT INFORMATION
  Report Type: Report from Study
  Country: US (occurrence: US)
  Receive Date: 20251121
  Receipt Date: 20251121
  Transmission Date: 20260118
  Serious: Yes (Hospitalization)
  Sender: ROCHE
  Company Number: US-ROCHE-10000438691

PATIENT
  Age: 24 Year
  Sex: Male

DRUGS (1)
  1. HEMLIBRA [Suspect]
     Active Substance: EMICIZUMAB-KXWH
     Indication: Haemophilia
     Dosage: INJECT 300MG (2ML) SUBCUTANEOUSLY EVERY 14 DAY(S) MAINTENANCE DOSE
     Route: 058

REACTIONS (1)
  - Haemorrhage [Unknown]
